FAERS Safety Report 5098636-0 (Version None)
Quarter: 2006Q3

REPORT INFORMATION
  Report Type: 
  Country: None (occurrence: None)
  Receive Date: 20060906
  Receipt Date: 20060321
  Transmission Date: 20061208
  Serious: No
  Sender: FDA-Public Use
  Company Number: US-GLAXOSMITHKLINE-A0598423A

PATIENT
  Age: 71 Year
  Sex: Male

DRUGS (5)
  1. REQUIP [Suspect]
     Indication: NEUROPATHY
     Dosage: .25MG FOUR TIMES PER DAY
     Route: 048
  2. COZAAR [Concomitant]
  3. LORAZEPAM [Concomitant]
  4. LOVASTATIN [Concomitant]
  5. VIAGRA [Concomitant]

REACTIONS (3)
  - DRY SKIN [None]
  - PARAESTHESIA [None]
  - RASH [None]
